FAERS Safety Report 25144793 (Version 2)
Quarter: 2025Q2

REPORT INFORMATION
  Report Type: Report from Study
  Country: US (occurrence: US)
  Receive Date: 20250401
  Receipt Date: 20250429
  Transmission Date: 20250716
  Serious: No
  Sender: SUNOVION
  Company Number: US-SUMITOMO PHARMA SWITZERLAND GMBH-2025SPA002737

PATIENT

DRUGS (7)
  1. ORGOVYX [Suspect]
     Active Substance: RELUGOLIX
     Indication: Prostate cancer
     Route: 048
  2. ORGOVYX [Suspect]
     Active Substance: RELUGOLIX
     Dosage: 120 MG, QD
     Route: 048
  3. CASODEX [Concomitant]
     Active Substance: BICALUTAMIDE
     Route: 048
  4. FLONASE ALLERGY RELIEF [Concomitant]
     Active Substance: FLUTICASONE PROPIONATE
     Route: 045
  5. METOPROLOL SUCCINATE [Concomitant]
     Active Substance: METOPROLOL SUCCINATE
     Route: 048
  6. VITAMINS [Concomitant]
     Active Substance: VITAMINS
     Route: 048
  7. PEPCID [Concomitant]
     Active Substance: FAMOTIDINE
     Route: 048

REACTIONS (2)
  - Nausea [Unknown]
  - Hot flush [Unknown]
